FAERS Safety Report 5911439-7 (Version None)
Quarter: 2008Q4

REPORT INFORMATION
  Report Type: 
  Country: None (occurrence: None)
  Receive Date: 20081007
  Receipt Date: 20080925
  Transmission Date: 20090506
  Serious: Yes (Other)
  Sender: FDA-Public Use
  Company Number: JP-PFIZER INC-2008079150

PATIENT
  Age: 44 Year
  Sex: Female

DRUGS (6)
  1. IDARUBICIN HCL [Suspect]
     Indication: ACUTE LEUKAEMIA
     Route: 042
  2. CYTARABINE [Suspect]
  3. MITOXANTRONE [Suspect]
  4. METHOTREXATE SODIUM [Suspect]
  5. CYCLOPHOSPHAMIDE [Suspect]
  6. CYCLOSPORINE [Suspect]

REACTIONS (3)
  - ALBUMINURIA [None]
  - RENAL IMPAIRMENT [None]
  - THROMBOTIC MICROANGIOPATHY [None]
